FAERS Safety Report 18802840 (Version 1)
Quarter: 2021Q1

REPORT INFORMATION
  Report Type: Spontaneous
  Country: US (occurrence: US)
  Receive Date: 20210128
  Receipt Date: 20210128
  Transmission Date: 20210419
  Serious: No
  Sender: FDA-Public Use
  Company Number: US-PFIZER INC-2021065107

PATIENT
  Age: 61 Year
  Sex: Female
  Weight: 60.78 kg

DRUGS (1)
  1. SOLU?MEDROL [Suspect]
     Active Substance: METHYLPREDNISOLONE SODIUM SUCCINATE
     Dosage: UNK
     Dates: start: 20210114

REACTIONS (2)
  - Asthenia [Not Recovered/Not Resolved]
  - Candida infection [Not Recovered/Not Resolved]
